FAERS Safety Report 5888962-7 (Version None)
Quarter: 2008Q3

REPORT INFORMATION
  Report Type: 
  Country: None (occurrence: None)
  Receive Date: 20080919
  Receipt Date: 20080513
  Transmission Date: 20090109
  Serious: No
  Sender: FDA-Public Use
  Company Number: US-BAYER-200822856NA

PATIENT
  Sex: Male

DRUGS (3)
  1. AVELOX [Suspect]
     Indication: SINUS OPERATION
     Route: 048
  2. LORTAB [Concomitant]
  3. SALINE IRRIGATION SOLUTION (NOS) [Concomitant]

REACTIONS (3)
  - HEAD TITUBATION [None]
  - MUSCLE TWITCHING [None]
  - TREMOR [None]
